FAERS Safety Report 8762599 (Version 2)
Quarter: 2012Q4

REPORT INFORMATION
  Report Type: Report from Study
  Country: JP (occurrence: JP)
  Receive Date: 20120830
  Receipt Date: 20120913
  Transmission Date: 20130627
  Serious: Yes (Other)
  Sender: FDA-Public Use
  Company Number: JP-ROCHE-1109431

PATIENT
  Age: 69 Year
  Sex: Female
  Weight: 46.7 kg

DRUGS (24)
  1. TARCEVA [Suspect]
     Indication: NON-SMALL CELL LUNG CANCER
     Route: 048
     Dates: start: 20110607, end: 20120820
  2. TARCEVA [Suspect]
     Indication: NON-SMALL CELL LUNG CANCER
     Route: 048
     Dates: start: 20120820
  3. AVASTIN [Suspect]
     Indication: NON-SMALL CELL LUNG CANCER
     Route: 042
     Dates: start: 20110607, end: 20120727
  4. KENALOG [Concomitant]
     Indication: STOMATITIS
     Route: 049
     Dates: start: 20110615, end: 20110811
  5. AZUNOL [Concomitant]
     Indication: STOMATITIS
     Route: 065
     Dates: start: 20110616, end: 20110811
  6. RINDERON-V [Concomitant]
     Indication: RASH MACULO-PAPULAR
     Route: 065
     Dates: start: 20110616, end: 20110818
  7. RINDERON-V [Concomitant]
     Indication: RASH MACULO-PAPULAR
     Route: 061
     Dates: start: 20120203
  8. DALACIN T [Concomitant]
     Indication: RASH MACULO-PAPULAR
     Route: 065
     Dates: start: 20110818
  9. MINOCYCLINE HYDROCHLORIDE [Concomitant]
     Indication: RASH MACULO-PAPULAR
     Route: 048
     Dates: start: 20110818
  10. HIRUDOID [Concomitant]
     Indication: DRY SKIN
     Route: 061
     Dates: start: 20110901
  11. HIRUDOID [Concomitant]
     Indication: DRY SKIN
     Route: 065
     Dates: start: 20110901
  12. ALESION [Concomitant]
     Indication: RASH MACULO-PAPULAR
     Route: 048
     Dates: start: 20111228, end: 20120103
  13. ELTACIN (JAPAN) [Concomitant]
     Indication: HERPES ZOSTER
     Route: 061
     Dates: start: 20120105, end: 20120203
  14. LOXONIN [Concomitant]
     Indication: HERPES ZOSTER
     Route: 048
     Dates: start: 20120105, end: 20120117
  15. LOXONIN [Concomitant]
     Indication: PAIN
     Route: 048
     Dates: start: 20120522
  16. PERAPRIN [Concomitant]
     Indication: VOMITING
     Route: 048
     Dates: start: 20120106, end: 20120108
  17. ACUATIM [Concomitant]
     Indication: RASH MACULO-PAPULAR
     Route: 061
     Dates: start: 20120106
  18. ACICLOVIR [Concomitant]
     Indication: HERPES ZOSTER
     Route: 065
     Dates: start: 20120105, end: 20120111
  19. MUCOSTA [Concomitant]
     Indication: GASTRITIS PROPHYLAXIS
     Route: 048
     Dates: start: 20120105, end: 20120117
  20. MYSER [Concomitant]
     Indication: PRURITUS
     Route: 061
     Dates: start: 20120112
  21. METHYCOBAL [Concomitant]
     Indication: HERPES ZOSTER
     Route: 048
     Dates: start: 20120118, end: 20120202
  22. CLOBETASONE BUTYRATE [Concomitant]
     Indication: RASH MACULO-PAPULAR
     Route: 061
     Dates: start: 20120227
  23. KETAS [Concomitant]
     Indication: PRURITUS
     Route: 047
     Dates: start: 20120227
  24. BLOPRESS [Concomitant]
     Indication: HYPERTENSION
     Route: 048
     Dates: start: 20120502

REACTIONS (1)
  - Pancreatic carcinoma [Not Recovered/Not Resolved]
